FAERS Safety Report 5187936-1 (Version None)
Quarter: 2006Q4

REPORT INFORMATION
  Report Type: 
  Country: None (occurrence: None)
  Receive Date: 20061221
  Receipt Date: 20050819
  Transmission Date: 20070319
  Serious: Yes (Hospitalization)
  Sender: FDA-Public Use
  Company Number: GB-BAYER-200510515BNE

PATIENT
  Age: 43 Year
  Sex: Male

DRUGS (8)
  1. ASPIRIN [Suspect]
     Route: 065
  2. AMLODIPINE [Suspect]
     Dosage: UNIT DOSE: 10 MG
     Route: 048
  3. FLUOXETINE [Suspect]
     Route: 048
  4. FOLIC ACID [Suspect]
     Route: 065
  5. ACETAMINOPHEN [Suspect]
     Route: 065
  6. CITALOPRAM HYDROBROMIDE [Suspect]
     Route: 065
  7. PERINDOPRIL ERBUMINE [Suspect]
     Route: 065
  8. ALCOHOL [Suspect]

REACTIONS (7)
  - ALCOHOL USE [None]
  - HYPOKALAEMIA [None]
  - HYPOTENSION [None]
  - INTENTIONAL OVERDOSE [None]
  - METABOLIC ACIDOSIS [None]
  - RENAL FAILURE [None]
  - URINARY RETENTION [None]
